FAERS Safety Report 5952626-1 (Version None)
Quarter: 2008Q4

REPORT INFORMATION
  Report Type: 
  Country: None (occurrence: None)
  Receive Date: 20081028
  Receipt Date: 20081009
  Transmission Date: 20090506
  Serious: Yes (Hospitalization)
  Sender: FDA-Public Use
  Company Number: 170298USA

PATIENT
  Age: 62 Year
  Sex: Male
  Weight: 78.9259 kg

DRUGS (6)
  1. BECLOMETHASONE DIPROPIONATE [Suspect]
     Dosage: 2 PUFFS BID (80 MCG,2 IN 1 D),RESPIRATORY (INHALATION)
     Route: 055
     Dates: start: 20071201
  2. TIOTROPIUM BROMIDE [Concomitant]
  3. SALMETEROL XINAFOATE [Concomitant]
  4. PROAIR HFA [Concomitant]
  5. FLUNISOLIDE [Concomitant]
  6. DIAZEPAM [Concomitant]

REACTIONS (2)
  - BACK PAIN [None]
  - SWELLING [None]
